FAERS Safety Report 17392353 (Version 1)
Quarter: 2020Q1

REPORT INFORMATION
  Report Type: Report from Study
  Country: US (occurrence: US)
  Receive Date: 20200207
  Receipt Date: 20200207
  Transmission Date: 20200409
  Serious: Yes (Other)
  Sender: FDA-Public Use
  Company Number: US-ROCHE-2537811

PATIENT
  Sex: Female

DRUGS (1)
  1. OCREVUS [Suspect]
     Active Substance: OCRELIZUMAB
     Indication: RELAPSING MULTIPLE SCLEROSIS
     Dosage: DATE OF TREATMENT:13/JUL/2017, 16/JAN/2018, 16/JAN/2019 AND 17/JUL/2019, 16/JUL/2018
     Route: 065
     Dates: start: 20170629

REACTIONS (1)
  - Upper respiratory tract infection [Not Recovered/Not Resolved]
